FAERS Safety Report 7313894-7 (Version None)
Quarter: 2011Q1

REPORT INFORMATION
  Report Type: 
  Country: None (occurrence: None)
  Receive Date: 20110225
  Receipt Date: 20110214
  Transmission Date: 20110831
  Serious: Yes (Hospitalization)
  Sender: FDA-Public Use
  Company Number: US-SANOFI-AVENTIS-2011SA009346

PATIENT
  Age: 57 Year
  Sex: Female

DRUGS (2)
  1. MULTAQ [Suspect]
     Indication: ATRIAL FIBRILLATION
     Route: 048
     Dates: start: 20100601
  2. AZITHROMYCIN [Suspect]
     Route: 065
     Dates: start: 20110106, end: 20110108

REACTIONS (5)
  - ATRIAL FIBRILLATION [None]
  - MEDICATION ERROR [None]
  - TOOTH ABSCESS [None]
  - CHEST PAIN [None]
  - UPPER RESPIRATORY TRACT INFECTION [None]
